FAERS Safety Report 14772750 (Version 1)
Quarter: 2018Q2

REPORT INFORMATION
  Report Type: Spontaneous
  Country: FR (occurrence: FR)
  Receive Date: 20180418
  Receipt Date: 20180418
  Transmission Date: 20180711
  Serious: Yes (Hospitalization)
  Sender: FDA-Public Use
  Company Number: FR-MERCK KGAA-2045912

PATIENT
  Age: 47 Year
  Sex: Female

DRUGS (4)
  1. NOVOTHYROX [Suspect]
     Active Substance: LEVOTHYROXINE SODIUM
     Dates: start: 20170923
  2. NOVOTHYROX [Suspect]
     Active Substance: LEVOTHYROXINE SODIUM
     Dates: start: 20170607
  3. NOVOTHYROX [Suspect]
     Active Substance: LEVOTHYROXINE SODIUM
     Dates: start: 20170607
  4. NOVOTHYROX [Suspect]
     Active Substance: LEVOTHYROXINE SODIUM
     Indication: PRODUCT USED FOR UNKNOWN INDICATION

REACTIONS (21)
  - Extrasystoles [None]
  - Personal relationship issue [None]
  - Nasopharyngitis [Not Recovered/Not Resolved]
  - Dizziness [None]
  - Blood pressure increased [None]
  - Blood thyroid stimulating hormone increased [None]
  - Palpitations [None]
  - Feeling abnormal [None]
  - Hyperhidrosis [None]
  - Glomerular filtration rate decreased [None]
  - Fatigue [Not Recovered/Not Resolved]
  - Amnesia [Not Recovered/Not Resolved]
  - Loss of personal independence in daily activities [None]
  - Ear pain [None]
  - Asthenia [Not Recovered/Not Resolved]
  - Neuralgia [None]
  - Insomnia [Not Recovered/Not Resolved]
  - Self esteem decreased [None]
  - Listless [None]
  - Headache [Not Recovered/Not Resolved]
  - Aphasia [Not Recovered/Not Resolved]

NARRATIVE: CASE EVENT DATE: 20140829
